FAERS Safety Report 12196121 (Version 2)
Quarter: 2016Q2

REPORT INFORMATION
  Report Type: Spontaneous
  Country: US (occurrence: US)
  Receive Date: 20160321
  Receipt Date: 20160527
  Transmission Date: 20160815
  Serious: No
  Sender: FDA-Public Use
  Company Number: PHEH2016US006751

PATIENT
  Age: 18 Year
  Sex: Female
  Weight: 43.5 kg

DRUGS (1)
  1. GILENYA [Suspect]
     Active Substance: FINGOLIMOD HYDROCHLORIDE
     Indication: RELAPSING-REMITTING MULTIPLE SCLEROSIS
     Dosage: 0.5 MG, QD
     Route: 048

REACTIONS (10)
  - Blood glucose increased [Unknown]
  - Blood calcium decreased [Unknown]
  - White blood cell count increased [Unknown]
  - Haemoglobin decreased [Unknown]
  - Dyspnoea [Recovering/Resolving]
  - Neutrophil count increased [Unknown]
  - Monocyte count increased [Unknown]
  - Blood immunoglobulin G increased [Unknown]
  - Lymphocyte percentage decreased [Unknown]
  - Central nervous system lesion [Unknown]

NARRATIVE: CASE EVENT DATE: 20150731
